FAERS Safety Report 6161860-X (Version None)
Quarter: 2009Q2

REPORT INFORMATION
  Report Type: 
  Country: None (occurrence: None)
  Receive Date: 20090421
  Receipt Date: 20090420
  Transmission Date: 20091009
  Serious: Yes (Death)
  Sender: FDA-Public Use
  Company Number: A0779267A

PATIENT
  Age: 52 Year
  Sex: Male

DRUGS (7)
  1. ANDRODERM [Suspect]
     Indication: HYPOGONADISM
     Dosage: 5MG PER DAY
     Route: 062
     Dates: start: 20080609, end: 20090201
  2. OPANA (OXYMORPHONE HCL) [Suspect]
     Indication: RHEUMATOID ARTHRITIS
     Dosage: 30MG TWICE PER DAY
     Route: 048
     Dates: start: 20090202, end: 20090201
  3. FLUOXETINE [Suspect]
     Indication: DEPRESSION
     Dosage: 40MG PER DAY
     Route: 048
     Dates: start: 20071008, end: 20090201
  4. LISINOPRIL [Suspect]
     Indication: HYPERTENSION
     Dosage: 1TAB PER DAY
     Route: 048
     Dates: start: 20080404, end: 20090201
  5. NABUMETONE [Suspect]
     Indication: ARTHRITIS
     Dosage: 750MG TWICE PER DAY
     Route: 048
     Dates: start: 20070610, end: 20090201
  6. LORATADINE [Suspect]
     Dosage: 10MG PER DAY
     Route: 048
     Dates: start: 20081031, end: 20090201
  7. FOLIC ACID [Suspect]
     Indication: DRUG USE FOR UNKNOWN INDICATION
     Dosage: 1MG PER DAY
     Route: 048
     Dates: start: 20070417, end: 20090201

REACTIONS (2)
  - DEATH [None]
  - PAIN [None]
